FAERS Safety Report 9885259 (Version 1)
Quarter: 2014Q1

REPORT INFORMATION
  Report Type: Spontaneous
  Country: US (occurrence: US)
  Receive Date: 20140210
  Receipt Date: 20140210
  Transmission Date: 20141002
  Serious: No
  Sender: FDA-Public Use
  Company Number: US-PFIZER INC-2014034179

PATIENT
  Age: 40 Year
  Sex: Female
  Weight: 63.49 kg

DRUGS (1)
  1. PRISTIQ [Suspect]
     Indication: DEPRESSION
     Dosage: UNK, DAILY

REACTIONS (4)
  - Hypertension [Unknown]
  - Chest pain [Unknown]
  - Blood iron decreased [Unknown]
  - Irritability [Unknown]
